FAERS Safety Report 6067466-5 (Version None)
Quarter: 2009Q1

REPORT INFORMATION
  Report Type: 
  Country: None (occurrence: None)
  Receive Date: 20090205
  Receipt Date: 20090126
  Transmission Date: 20090719
  Serious: Yes (Death)
  Sender: FDA-Public Use
  Company Number: US-ELI_LILLY_AND_COMPANY-US200901005672

PATIENT
  Age: 31 Year
  Sex: Female

DRUGS (4)
  1. CYMBALTA [Suspect]
     Dosage: 1 D/F, UNK
  2. PROZAC [Suspect]
     Dosage: 1 D/F, UNK
  3. BENZODIAZEPINE DERIVATIVES [Concomitant]
     Dosage: 1 D/F, UNK
  4. CIPROFLOXACIN                      /00697201/ [Concomitant]
     Dosage: 1 D/F, UNK

REACTIONS (1)
  - DEATH [None]
